FAERS Safety Report 25365472 (Version 1)
Quarter: 2025Q2

REPORT INFORMATION
  Report Type: Spontaneous
  Country: AU (occurrence: AU)
  Receive Date: 20250527
  Receipt Date: 20250527
  Transmission Date: 20250717
  Serious: Yes (Hospitalization, Other)
  Sender: CIPLA
  Company Number: AU-CIPLA LTD.-2025AU06201

PATIENT

DRUGS (54)
  1. AZACITIDINE [Suspect]
     Active Substance: AZACITIDINE
     Indication: Acute myeloid leukaemia
     Route: 042
     Dates: start: 20240923, end: 20241027
  2. VENETOCLAX [Suspect]
     Active Substance: VENETOCLAX
     Indication: Acute myeloid leukaemia
     Route: 048
     Dates: start: 20240923, end: 20241202
  3. BACTRIM [Concomitant]
     Active Substance: SULFAMETHOXAZOLE\TRIMETHOPRIM
     Indication: Antibiotic prophylaxis
     Route: 048
     Dates: start: 20240918
  4. ENOXAPARIN SODIUM [Concomitant]
     Active Substance: ENOXAPARIN SODIUM
     Indication: Vascular access complication
     Route: 058
     Dates: start: 20241118, end: 20241118
  5. ENOXAPARIN SODIUM [Concomitant]
     Active Substance: ENOXAPARIN SODIUM
     Route: 058
     Dates: start: 20241119, end: 20241124
  6. MAXOLON [Concomitant]
     Active Substance: METOCLOPRAMIDE HYDROCHLORIDE
     Indication: Antiemetic supportive care
     Route: 065
     Dates: start: 20241224
  7. PANADOL [Concomitant]
     Active Substance: ACETAMINOPHEN
     Indication: Arthralgia
     Route: 065
  8. PANADOL [Concomitant]
     Active Substance: ACETAMINOPHEN
     Indication: Neck pain
     Route: 065
  9. PANADOL [Concomitant]
     Active Substance: ACETAMINOPHEN
     Indication: Back pain
     Route: 048
     Dates: start: 20240918
  10. ACYCLOVIR [Concomitant]
     Active Substance: ACYCLOVIR
     Indication: Herpes simplex
     Route: 042
     Dates: start: 20241111, end: 20241115
  11. ALLOPURINOL [Concomitant]
     Active Substance: ALLOPURINOL
     Indication: Prophylaxis
     Dosage: 300 MILLIGRAM, QD
     Route: 048
     Dates: start: 20240912
  12. AMPHOTERICIN B [Concomitant]
     Active Substance: AMPHOTERICIN B
     Indication: Candida infection
     Dosage: 10 MILLIGRAM, QD
     Route: 048
     Dates: start: 20241003, end: 20241224
  13. AMPHOTERICIN B [Concomitant]
     Active Substance: AMPHOTERICIN B
     Indication: Antifungal prophylaxis
     Route: 048
     Dates: start: 20241205, end: 20241224
  14. CALCIUM CARBONATE [Concomitant]
     Active Substance: CALCIUM CARBONATE
     Indication: Supplementation therapy
     Route: 048
     Dates: start: 20241208, end: 20241224
  15. CYCLIZINE [Concomitant]
     Active Substance: CYCLIZINE
     Indication: Prophylaxis of nausea and vomiting
     Route: 042
     Dates: start: 20241018, end: 20241105
  16. CYCLIZINE [Concomitant]
     Active Substance: CYCLIZINE
     Route: 042
     Dates: start: 20241115, end: 20241120
  17. CYCLIZINE [Concomitant]
     Active Substance: CYCLIZINE
     Route: 042
     Dates: start: 20241208, end: 20241210
  18. CYCLIZINE [Concomitant]
     Active Substance: CYCLIZINE
     Route: 048
     Dates: start: 20241210, end: 20241215
  19. CYCLIZINE [Concomitant]
     Active Substance: CYCLIZINE
     Route: 048
     Dates: start: 20241223
  20. CYCLIZINE [Concomitant]
     Active Substance: CYCLIZINE
     Route: 048
     Dates: start: 20241224
  21. DAPTOMYCIN [Concomitant]
     Active Substance: DAPTOMYCIN
     Indication: Febrile neutropenia
     Route: 042
     Dates: start: 20241016, end: 20241029
  22. DAPTOMYCIN [Concomitant]
     Active Substance: DAPTOMYCIN
     Indication: Enterococcal infection
     Route: 042
     Dates: start: 20241115, end: 20241119
  23. DAPTOMYCIN [Concomitant]
     Active Substance: DAPTOMYCIN
     Route: 042
     Dates: start: 20241120, end: 20241121
  24. DAPTOMYCIN [Concomitant]
     Active Substance: DAPTOMYCIN
     Route: 042
     Dates: start: 20241122, end: 20241125
  25. DAPTOMYCIN [Concomitant]
     Active Substance: DAPTOMYCIN
     Route: 042
     Dates: start: 20241204, end: 20241208
  26. DICLOFENAC [Concomitant]
     Active Substance: DICLOFENAC
     Indication: Pain prophylaxis
     Route: 061
     Dates: start: 20240927
  27. FILGRASTIM [Concomitant]
     Active Substance: FILGRASTIM
     Indication: Herpes simplex
     Route: 058
     Dates: start: 20241122, end: 20241122
  28. FILGRASTIM [Concomitant]
     Active Substance: FILGRASTIM
     Route: 058
     Dates: start: 20241204, end: 20241204
  29. FOLIC ACID [Concomitant]
     Active Substance: FOLIC ACID
     Indication: Supplementation therapy
     Route: 048
     Dates: start: 20241115
  30. FUROSEMIDE [Concomitant]
     Active Substance: FUROSEMIDE
     Indication: Weight increased
     Dosage: 40 MILLIGRAM, QD
     Route: 048
     Dates: start: 20241017, end: 20241115
  31. FUROSEMIDE [Concomitant]
     Active Substance: FUROSEMIDE
     Indication: Prophylaxis
     Route: 048
     Dates: start: 20241203
  32. IVABRADINE [Concomitant]
     Active Substance: IVABRADINE
     Indication: Sinus tachycardia
     Dosage: 5 MILLIGRAM, QOD
     Route: 048
     Dates: start: 20241110, end: 20241122
  33. IVABRADINE [Concomitant]
     Active Substance: IVABRADINE
     Route: 048
     Dates: start: 20241123, end: 20241125
  34. LANSOPRAZOLE [Concomitant]
     Active Substance: LANSOPRAZOLE
     Indication: Gastrooesophageal reflux prophylaxis
     Dosage: 30 MILLIGRAM, QD
     Route: 048
     Dates: start: 20241113, end: 20241122
  35. LIDOCAINE [Concomitant]
     Active Substance: LIDOCAINE
     Indication: Herpes simplex
     Route: 061
     Dates: start: 20241010
  36. LINEZOLID [Concomitant]
     Active Substance: LINEZOLID
     Indication: Infestation
     Route: 042
     Dates: start: 20241028
  37. LINEZOLID [Concomitant]
     Active Substance: LINEZOLID
     Indication: Infection
     Route: 042
     Dates: start: 20241029, end: 20241105
  38. LORAZEPAM [Concomitant]
     Active Substance: LORAZEPAM
     Indication: Prophylaxis of nausea and vomiting
     Dosage: 1 MILLIGRAM, QOD
     Route: 048
     Dates: start: 20241003
  39. MAGNESIUM ASPARTATE [Concomitant]
     Active Substance: MAGNESIUM ASPARTATE
     Indication: Mineral supplementation
     Dosage: 500 MILLIGRAM, QOD
     Route: 048
     Dates: start: 20240301
  40. MEROPENEM [Concomitant]
     Active Substance: MEROPENEM
     Indication: Herpes simplex
     Route: 042
     Dates: start: 20241016, end: 20241023
  41. MEROPENEM [Concomitant]
     Active Substance: MEROPENEM
     Indication: Infestation
     Route: 042
     Dates: start: 20241115, end: 20241118
  42. MICAFUNGIN [Concomitant]
     Active Substance: MICAFUNGIN SODIUM
     Indication: Antifungal prophylaxis
     Dosage: 50 MILLIGRAM, QD
     Route: 042
     Dates: start: 20240918, end: 20241211
  43. SODIUM PHOSPHATE [Concomitant]
     Active Substance: SODIUM PHOSPHATE
     Indication: Supplementation therapy
     Dosage: 1000 MILLIGRAM, QOD
     Route: 048
     Dates: start: 20241017
  44. NYSTATIN [Concomitant]
     Active Substance: NYSTATIN
     Indication: Antifungal prophylaxis
     Route: 048
     Dates: start: 20240501
  45. NYSTATIN [Concomitant]
     Active Substance: NYSTATIN
     Route: 048
     Dates: start: 20241229
  46. OLANZAPINE [Concomitant]
     Active Substance: OLANZAPINE
     Indication: Prophylaxis of nausea and vomiting
     Dosage: 5 MICROGRAM, QD
     Route: 048
     Dates: start: 20240930
  47. OLANZAPINE [Concomitant]
     Active Substance: OLANZAPINE
     Indication: Prophylaxis
     Route: 048
     Dates: start: 20241210, end: 20241211
  48. OLANZAPINE [Concomitant]
     Active Substance: OLANZAPINE
     Dosage: 2.5 MILLIGRAM, QD
     Route: 048
     Dates: start: 20241224
  49. OXYCODONE [Concomitant]
     Active Substance: OXYCODONE
     Indication: Herpes simplex
     Route: 048
     Dates: start: 20241019
  50. POTASSIUM BICARBONATE [Concomitant]
     Active Substance: POTASSIUM BICARBONATE
     Indication: Supplementation therapy
     Dosage: UNK, QD
     Route: 048
     Dates: start: 20241224
  51. TAPENTADOL [Concomitant]
     Active Substance: TAPENTADOL
     Indication: Back pain
     Route: 065
  52. TAPENTADOL [Concomitant]
     Active Substance: TAPENTADOL
     Indication: Pain in extremity
     Route: 065
  53. TAPENTADOL [Concomitant]
     Active Substance: TAPENTADOL
     Indication: Herpes simplex
     Dosage: 50 MILLIGRAM, QD (TABLET)
     Route: 048
     Dates: start: 20241115, end: 20241118
  54. TAPENTADOL [Concomitant]
     Active Substance: TAPENTADOL
     Indication: Arthralgia
     Dosage: 50 MILLIGRAM, QD (TABLET)
     Route: 048
     Dates: start: 20241226

REACTIONS (2)
  - Leukocytosis [Recovered/Resolved with Sequelae]
  - Febrile neutropenia [Recovered/Resolved]

NARRATIVE: CASE EVENT DATE: 20241130
